FAERS Safety Report 21458113 (Version 3)
Quarter: 2022Q4

REPORT INFORMATION
  Report Type: Spontaneous
  Country: US (occurrence: US)
  Receive Date: 20221014
  Receipt Date: 20221028
  Transmission Date: 20230113
  Serious: No
  Sender: FDA-Public Use
  Company Number: US-PFIZER INC-202201227403

PATIENT
  Age: 64 Year
  Sex: Female
  Weight: 62.585 kg

DRUGS (2)
  1. PAXLOVID [Suspect]
     Active Substance: NIRMATRELVIR\RITONAVIR
     Indication: COVID-19 treatment
     Dosage: 1 PACKED BID
     Route: 048
     Dates: start: 20221013, end: 20221014
  2. CELEBREX [Concomitant]
     Active Substance: CELECOXIB
     Indication: Arthritis
     Dosage: 100 MG, 2X/DAY
     Dates: start: 2019

REACTIONS (3)
  - Urticaria [Recovered/Resolved]
  - Dysgeusia [Recovered/Resolved]
  - Paraesthesia oral [Recovered/Resolved]

NARRATIVE: CASE EVENT DATE: 20221013
